FAERS Safety Report 11856087 (Version 31)
Quarter: 2021Q3

REPORT INFORMATION
  Report Type: Report from Study
  Country: CA (occurrence: CA)
  Receive Date: 20151221
  Receipt Date: 20210811
  Transmission Date: 20211014
  Serious: Yes (Life-Threatening, Hospitalization, Other)
  Sender: FDA-Public Use
  Company Number: PHHY2015CA120340

PATIENT
  Age: 64 Year
  Sex: Female

DRUGS (12)
  1. SANDOSTATIN LAR DEPOT [Suspect]
     Active Substance: OCTREOTIDE ACETATE
     Indication: CARCINOID TUMOUR
     Dosage: 30 MG, QMO (EVERY 04 WEEKS)
     Route: 030
     Dates: start: 20150729
  2. CLONAZEPAM. [Concomitant]
     Active Substance: CLONAZEPAM
     Indication: PRODUCT USED FOR UNKNOWN INDICATION
     Dosage: 0.5 MG, BID
     Route: 048
  3. SANDOSTATIN LAR DEPOT [Suspect]
     Active Substance: OCTREOTIDE ACETATE
     Indication: NEUROENDOCRINE CARCINOMA METASTATIC
  4. SANDOSTATIN LAR DEPOT [Suspect]
     Active Substance: OCTREOTIDE ACETATE
  5. PMS ? METOPROLOL [Concomitant]
     Indication: PRODUCT USED FOR UNKNOWN INDICATION
     Dosage: UNK
     Route: 065
  6. INSULIN [Concomitant]
     Active Substance: INSULIN NOS
     Indication: PRODUCT USED FOR UNKNOWN INDICATION
     Dosage: UNK
     Route: 065
     Dates: start: 2017
  7. NITRAZEPAM [Concomitant]
     Active Substance: NITRAZEPAM
     Indication: PRODUCT USED FOR UNKNOWN INDICATION
     Dosage: 10 MG, QHS
     Route: 048
  8. APO?CLONAZEPAM [Concomitant]
     Active Substance: CLONAZEPAM
     Indication: PRODUCT USED FOR UNKNOWN INDICATION
     Dosage: UNK
     Route: 065
  9. MORPHINE [Suspect]
     Active Substance: MORPHINE
     Indication: NEURALGIA
     Dosage: UNK
     Route: 048
  10. MORPHINE [Suspect]
     Active Substance: MORPHINE
     Indication: PAIN
  11. METFORMIN [Suspect]
     Active Substance: METFORMIN HYDROCHLORIDE
     Indication: PRODUCT USED FOR UNKNOWN INDICATION
     Dosage: UNK
     Route: 065
  12. PANTOPRAZOLE [Concomitant]
     Active Substance: PANTOPRAZOLE
     Indication: PRODUCT USED FOR UNKNOWN INDICATION
     Dosage: 40 MG, BID (7 DAYS, THEN OD)
     Route: 048

REACTIONS (26)
  - Abdominal pain upper [Recovering/Resolving]
  - Hypertension [Unknown]
  - Arthralgia [Unknown]
  - Neuralgia [Unknown]
  - Malaise [Not Recovered/Not Resolved]
  - Blood glucose increased [Recovering/Resolving]
  - Back injury [Unknown]
  - Back pain [Not Recovered/Not Resolved]
  - Musculoskeletal chest pain [Unknown]
  - Blood pressure increased [Recovering/Resolving]
  - Sciatic nerve injury [Unknown]
  - Swelling face [Unknown]
  - COVID-19 [Recovering/Resolving]
  - Hypotension [Unknown]
  - Solar lentigo [Unknown]
  - Vomiting [Recovering/Resolving]
  - Diarrhoea [Unknown]
  - Body temperature increased [Unknown]
  - Blood pressure systolic increased [Unknown]
  - Spinal stenosis [Unknown]
  - Localised infection [Unknown]
  - Hepatic lesion [Not Recovered/Not Resolved]
  - Hiatus hernia [Not Recovered/Not Resolved]
  - Thrombosis [Unknown]
  - Joint swelling [Unknown]
  - Trigger finger [Unknown]

NARRATIVE: CASE EVENT DATE: 20151127
